FAERS Safety Report 25459407 (Version 1)
Quarter: 2025Q2

REPORT INFORMATION
  Report Type: Spontaneous
  Country: US (occurrence: US)
  Receive Date: 20250620
  Receipt Date: 20250620
  Transmission Date: 20250716
  Serious: No
  Sender: GLAXOSMITHKLINE
  Company Number: US-GSK-US2025AMR076239

PATIENT
  Sex: Female

DRUGS (1)
  1. NUCALA [Suspect]
     Active Substance: MEPOLIZUMAB
     Indication: Asthma
     Dosage: 100 MG, Q4W
     Dates: start: 202403

REACTIONS (3)
  - Ocular hyperaemia [Not Recovered/Not Resolved]
  - Nasal discomfort [Not Recovered/Not Resolved]
  - Seasonal allergy [Not Recovered/Not Resolved]
